FAERS Safety Report 9341056 (Version 1)
Quarter: 2013Q2

REPORT INFORMATION
  Report Type: Spontaneous
  Country: US (occurrence: US)
  Receive Date: 20130610
  Receipt Date: 20130610
  Transmission Date: 20140414
  Serious: No
  Sender: FDA-Public Use
  Company Number: US-ASTRAZENECA-2013SE39992

PATIENT
  Age: 64 Year
  Sex: Male

DRUGS (9)
  1. OMEPRAZOLE [Suspect]
     Route: 048
  2. BRILINTA [Suspect]
     Indication: ACUTE CORONARY SYNDROME
     Route: 048
     Dates: start: 20130506, end: 20130508
  3. ASPIRIN [Concomitant]
     Route: 048
  4. HYDROXIZINE [Concomitant]
     Route: 048
  5. MICARDIS [Concomitant]
     Dosage: 60 OR 80 MILLIGRAMS DAILY
     Route: 048
  6. NITROGLYCERIN [Concomitant]
     Route: 048
  7. VYTORIN [Concomitant]
     Dosage: 10/20 MILLIGRAMS DAILY
     Route: 048
  8. PLAVIX [Concomitant]
  9. PLAVIX [Concomitant]

REACTIONS (1)
  - Dyspnoea [Unknown]
